FAERS Safety Report 23222503 (Version 2)
Quarter: 2024Q1

REPORT INFORMATION
  Report Type: Spontaneous
  Country: MX (occurrence: MX)
  Receive Date: 20231123
  Receipt Date: 20240307
  Transmission Date: 20240410
  Serious: Yes (Other)
  Sender: FDA-Public Use
  Company Number: MX-Eisai-EC-2023-153399

PATIENT
  Age: 62 Year
  Sex: Male

DRUGS (1)
  1. LENVIMA [Suspect]
     Active Substance: LENVATINIB
     Indication: Hepatocellular carcinoma
     Dosage: UNKNOWN DOSE AND FREQUENCY
     Route: 048

REACTIONS (5)
  - Tumour haemorrhage [Unknown]
  - Off label use [Unknown]
  - Haemorrhagic ascites [Unknown]
  - Haemoglobin decreased [Unknown]
  - Hypovolaemic shock [Unknown]
